FAERS Safety Report 4818807-5 (Version None)
Quarter: 2005Q4

REPORT INFORMATION
  Report Type: 
  Country: None (occurrence: None)
  Receive Date: 20051101
  Receipt Date: 20051021
  Transmission Date: 20060501
  Serious: Yes (Other)
  Sender: FDA-Public Use
  Company Number: 2005146609

PATIENT
  Sex: Male
  Weight: 126.1 kg

DRUGS (10)
  1. ZOLOFT [Suspect]
     Indication: DEPRESSION
     Dosage: 50 MG (50 MG, 1 IN 1 D), ORAL
     Route: 048
  2. CHONDROITIN/GLUCOSAMINE/METHYLSULFONYLMETHANE (CHONDROITIN, GLUCOSAMIN [Concomitant]
  3. CELEBREX [Concomitant]
  4. MULTIVITAMIN [Concomitant]
  5. ASPIRIN [Concomitant]
  6. ISOSORBIDE MONONITRATE [Concomitant]
  7. NORVASC [Concomitant]
  8. ZOCOR [Concomitant]
  9. ALTACE [Concomitant]
  10. NITROGLYCERIN [Concomitant]

REACTIONS (6)
  - APATHY [None]
  - CORONARY ARTERY SURGERY [None]
  - DRUG EFFECT DECREASED [None]
  - GALLBLADDER OPERATION [None]
  - HIGH DENSITY LIPOPROTEIN DECREASED [None]
  - SWELLING [None]
